FAERS Safety Report 6622446-3 (Version None)
Quarter: 2010Q1

REPORT INFORMATION
  Report Type: 
  Country: None (occurrence: None)
  Receive Date: 20100310
  Receipt Date: 20100128
  Transmission Date: 20100710
  Serious: Yes (Hospitalization)
  Sender: FDA-Public Use
  Company Number: US-BIOGENIDEC-2010BI003169

PATIENT
  Age: 41 Year
  Sex: Female

DRUGS (1)
  1. AVONEX [Suspect]
     Indication: MULTIPLE SCLEROSIS
     Route: 030
     Dates: start: 20070401

REACTIONS (11)
  - COORDINATION ABNORMAL [None]
  - DIABETES MELLITUS [None]
  - FALL [None]
  - GAIT DISTURBANCE [None]
  - HYPERAESTHESIA [None]
  - HYPOAESTHESIA [None]
  - MOOD SWINGS [None]
  - MULTIPLE SCLEROSIS RELAPSE [None]
  - PAIN [None]
  - PARAESTHESIA [None]
  - PILOERECTION [None]
